FAERS Safety Report 4587179-6 (Version None)
Quarter: 2005Q1

REPORT INFORMATION
  Report Type: 
  Country: None (occurrence: None)
  Receive Date: 20050215
  Receipt Date: 20050207
  Transmission Date: 20050727
  Serious: Yes (Other)
  Sender: FDA-Public Use
  Company Number: 200510540BCC

PATIENT
  Age: 78 Year
  Sex: Male
  Weight: 58.9676 kg

DRUGS (3)
  1. ALEVE (CAPLET) [Suspect]
     Indication: ARTHRALGIA
     Dosage: 220 MG, QD, ORAL
     Route: 048
  2. GLIPIZIDE [Concomitant]
  3. ATARAX [Concomitant]

REACTIONS (1)
  - MYOCARDIAL INFARCTION [None]
